FAERS Safety Report 9438745 (Version 1)
Quarter: 2013Q3

REPORT INFORMATION
  Report Type: Report from Study
  Country: GB (occurrence: GB)
  Receive Date: 20130802
  Receipt Date: 20130802
  Transmission Date: 20140515
  Serious: Yes (Death, Other)
  Sender: FDA-Public Use
  Company Number: GB-ABBOTT-13P-167-1127646-00

PATIENT
  Age: 71 Year
  Sex: Male
  Weight: 107 kg

DRUGS (1)
  1. HUMIRA [Suspect]
     Indication: PRODUCT USED FOR UNKNOWN INDICATION
     Route: 058
     Dates: start: 20060808

REACTIONS (3)
  - Pulmonary fibrosis [Fatal]
  - Myocardial ischaemia [Unknown]
  - Diabetes mellitus [Unknown]
